FAERS Safety Report 10573101 (Version 1)
Quarter: 2014Q4

REPORT INFORMATION
  Report Type: Spontaneous
  Country: CA (occurrence: None)
  Receive Date: 20141106
  Receipt Date: 20141106
  Transmission Date: 20150529
  Serious: Yes (Disabling)
  Sender: FDA-Public Use
  Company Number: VAL_03510_2014

PATIENT
  Age: 87 Year
  Sex: Male

DRUGS (10)
  1. ASA(UKNOWN) [Concomitant]
  2. KEFLEX/00145501/(UKNOWN) [Concomitant]
  3. ANCEF/00288502/(UKNOWN) [Concomitant]
  4. LIPITOR(UKNOWN) [Concomitant]
  5. PANTOLOC/01263204/(UKNOWN) [Concomitant]
  6. LOPRESSOR [Suspect]
     Active Substance: METOPROLOL TARTRATE
     Indication: PRODUCT USED FOR UNKNOWN INDICATION
     Dosage: 2 DF (QOD) 2 WEEKS 1 DAY UNTIL NOT CONTINUING
  7. IMOVANE(UKNOWN) [Concomitant]
  8. EXETROL(UKNOWN) [Concomitant]
  9. LANSOPRAZOLE(UKNOWN) [Concomitant]
  10. COLACE(UKNOWN) [Concomitant]

REACTIONS (5)
  - Vasomotor rhinitis [None]
  - Dyspnoea [None]
  - Choking sensation [None]
  - Rhinorrhoea [None]
  - Hypoacusis [None]
